FAERS Safety Report 4353627-X (Version None)
Quarter: 2004Q2

REPORT INFORMATION
  Report Type: 
  Country: None (occurrence: None)
  Receive Date: 20040430
  Receipt Date: 20040419
  Transmission Date: 20050107
  Serious: Yes (Hospitalization)
  Sender: FDA-Public Use
  Company Number: 2004UW07951

PATIENT
  Age: 76 Year
  Sex: Female
  Weight: 63.5036 kg

DRUGS (5)
  1. ATACAND HCT [Suspect]
     Indication: HYPERTENSION
     Dosage: 1 DF DAILY
     Dates: start: 20040409, end: 20040410
  2. HIGH BLOOD PRESSURE MEDICATION [Concomitant]
  3. NO MATCH [Concomitant]
  4. ACID REFLUX MEDICATION [Concomitant]
  5. LISINOPRIL [Concomitant]

REACTIONS (7)
  - ABDOMINAL DISTENSION [None]
  - ABDOMINAL PAIN UPPER [None]
  - CHILLS [None]
  - INFLUENZA [None]
  - MEDICATION ERROR [None]
  - PYREXIA [None]
  - RASH [None]
